FAERS Safety Report 14900862 (Version 2)
Quarter: 2018Q2

REPORT INFORMATION
  Report Type: Spontaneous
  Country: DE (occurrence: DE)
  Receive Date: 20180516
  Receipt Date: 20180626
  Transmission Date: 20180711
  Serious: Yes (Other)
  Sender: FDA-Public Use
  Company Number: DE-SA-2018SA136945

PATIENT
  Sex: Female

DRUGS (1)
  1. AUBAGIO [Suspect]
     Active Substance: TERIFLUNOMIDE
     Indication: MULTIPLE SCLEROSIS
     Dosage: 14 MG,UNK
     Route: 048

REACTIONS (6)
  - Swelling [Unknown]
  - Hodgkin^s disease [Unknown]
  - Polyneuropathy [Unknown]
  - Paraparesis [Unknown]
  - Erythema [Unknown]
  - Lividity [Unknown]

NARRATIVE: CASE EVENT DATE: 2016
